FAERS Safety Report 10020001 (Version 1)
Quarter: 2014Q1

REPORT INFORMATION
  Report Type: Spontaneous
  Country: FR (occurrence: FR)
  Receive Date: 20140318
  Receipt Date: 20140318
  Transmission Date: 20141002
  Serious: Yes (Other)
  Sender: FDA-Public Use
  Company Number: FR-GILEAD-2014-0097036

PATIENT
  Age: 64 Year
  Sex: Male

DRUGS (6)
  1. TRUVADA [Suspect]
     Indication: HIV INFECTION
     Dosage: 1 DF, QD
     Route: 048
     Dates: start: 20120430, end: 20131104
  2. KALETRA [Concomitant]
     Indication: HIV INFECTION
     Dosage: UNK
     Dates: start: 20120430
  3. CRESTOR [Concomitant]
  4. ADROVANCE [Concomitant]
  5. EFIENT [Concomitant]
  6. KARDEGIC [Concomitant]

REACTIONS (2)
  - Drug level above therapeutic [Recovered/Resolved]
  - Creatinine renal clearance decreased [Recovered/Resolved]
